FAERS Safety Report 18354515 (Version 2)
Quarter: 2020Q4

REPORT INFORMATION
  Report Type: Spontaneous
  Country: DE (occurrence: DE)
  Receive Date: 20201007
  Receipt Date: 20201026
  Transmission Date: 20210114
  Serious: Yes (Hospitalization, Other)
  Sender: FDA-Public Use
  Company Number: DE-SHILPA MEDICARE LIMITED-SML-DE-2020-00407

PATIENT
  Age: 60 Year
  Sex: Male
  Weight: 50 kg

DRUGS (13)
  1. IRINOTECAN, UNKNOWN [Suspect]
     Active Substance: IRINOTECAN
     Dosage: 190 MILLIGRAM
     Route: 065
     Dates: start: 20200330
  2. FOLINIC ACID [Suspect]
     Active Substance: LEUCOVORIN
     Dosage: 190 MILLIGRAM
     Route: 065
     Dates: start: 20200330
  3. FOLINIC ACID [Suspect]
     Active Substance: LEUCOVORIN
     Indication: COLORECTAL CANCER METASTATIC
     Dosage: 420 MILLIGRAM
     Route: 065
     Dates: start: 20200311
  4. FOLINIC ACID [Suspect]
     Active Substance: LEUCOVORIN
     Dosage: 600 MILLIGRAM
     Route: 065
     Dates: start: 20200226
  5. VECTIBIX [Suspect]
     Active Substance: PANITUMUMAB
     Indication: COLORECTAL CANCER METASTATIC
     Dosage: 300 MILLIGRAM
     Route: 042
     Dates: start: 20200313
  6. FLUOROURACIL. [Suspect]
     Active Substance: FLUOROURACIL
     Indication: COLORECTAL CANCER METASTATIC
     Dosage: 3600 MILLIGRAM
     Route: 042
     Dates: start: 20200226
  7. SIMVASTATIN RATIOPHARM [Concomitant]
     Active Substance: SIMVASTATIN
     Indication: HYPERCHOLESTEROLAEMIA
     Dosage: 40 MILLIGRAM, QD
     Route: 048
     Dates: start: 20200207
  8. IRINOTECAN, UNKNOWN [Suspect]
     Active Substance: IRINOTECAN
     Dosage: 270 MILLIGRAM
     Route: 065
     Dates: start: 20200226
  9. IRINOTECAN, UNKNOWN [Suspect]
     Active Substance: IRINOTECAN
     Indication: COLORECTAL CANCER METASTATIC
     Dosage: 190 MILLIGRAM
     Route: 065
     Dates: start: 20200311
  10. RAMIPRIL-RATIOPHARM [Concomitant]
     Indication: HYPERTENSION
     Dosage: 5 MILLIGRAM, QD
     Route: 048
     Dates: start: 20200207
  11. FLUOROURACIL. [Suspect]
     Active Substance: FLUOROURACIL
     Dosage: 2525 MILLIGRAM
     Route: 042
     Dates: start: 20200330
  12. FLUOROURACIL. [Suspect]
     Active Substance: FLUOROURACIL
     Dosage: 2525 MILLIGRAM
     Route: 042
     Dates: start: 20200311
  13. ASS-RATIOPHARM [Concomitant]
     Active Substance: ASPIRIN
     Indication: PRODUCT USED FOR UNKNOWN INDICATION
     Route: 048
     Dates: start: 20200207

REACTIONS (2)
  - Hypomagnesaemia [Recovering/Resolving]
  - Hypocalcaemia [Recovering/Resolving]

NARRATIVE: CASE EVENT DATE: 20200916
